FAERS Safety Report 4699134-6 (Version None)
Quarter: 2005Q2

REPORT INFORMATION
  Report Type: 
  Country: None (occurrence: None)
  Receive Date: 20050623
  Receipt Date: 20050623
  Transmission Date: 20051028
  Serious: Yes (Death)
  Sender: FDA-Public Use
  Company Number: None

PATIENT
  Sex: Male

DRUGS (12)
  1. GEMCITABINE [Suspect]
     Indication: BILIARY CANCER METASTATIC
     Dosage: 1200 MG QW 2/21DAY CYCLE IV
     Route: 042
     Dates: start: 20050221, end: 20050614
  2. IRINOTECAN [Suspect]
     Indication: BILIARY CANCER METASTATIC
     Dosage: 125 MG QW 2/21 DAY CYC IV
     Route: 042
     Dates: start: 20050221, end: 20050614
  3. ZOFRAN [Concomitant]
  4. DECADRON [Concomitant]
  5. ATROPINE [Concomitant]
  6. ASCORBIC ACID [Concomitant]
  7. MULTI-VITAMIN [Concomitant]
  8. AMBIEN [Concomitant]
  9. XANAX [Concomitant]
  10. COLACE [Concomitant]
  11. SENNAKOT [Concomitant]
  12. ZOLOFT [Concomitant]

REACTIONS (1)
  - DEATH [None]
